FAERS Safety Report 20777901 (Version 1)
Quarter: 2022Q2

REPORT INFORMATION
  Report Type: Spontaneous
  Country: FR (occurrence: FR)
  Receive Date: 20220503
  Receipt Date: 20220503
  Transmission Date: 20220721
  Serious: Yes (Other)
  Sender: FDA-Public Use
  Company Number: None

PATIENT
  Age: 30 Year
  Sex: Male
  Weight: 71 kg

DRUGS (4)
  1. PYRAZINAMIDE [Suspect]
     Active Substance: PYRAZINAMIDE
     Indication: Tuberculosis
     Dosage: 4 DF, QD
     Route: 048
     Dates: start: 20220118, end: 20220325
  2. ETHAMBUTOL HYDROCHLORIDE [Suspect]
     Active Substance: ETHAMBUTOL HYDROCHLORIDE
     Indication: Tuberculosis
     Dosage: 2 DF, QD
     Route: 048
     Dates: start: 20220118, end: 20220315
  3. RIMIFON [Suspect]
     Active Substance: ISONIAZID
     Indication: Tuberculosis
     Dosage: 1 DF, QD
     Route: 048
     Dates: start: 20220118, end: 20220218
  4. RIFAMPIN [Suspect]
     Active Substance: RIFAMPIN
     Indication: Tuberculosis
     Dosage: 2 DF, QD
     Route: 048
     Dates: start: 20220218

REACTIONS (2)
  - Myalgia [Not Recovered/Not Resolved]
  - Arthralgia [Not Recovered/Not Resolved]

NARRATIVE: CASE EVENT DATE: 20220201
